FAERS Safety Report 5755695-7 (Version None)
Quarter: 2008Q2

REPORT INFORMATION
  Report Type: 
  Country: None (occurrence: None)
  Receive Date: 20080530
  Receipt Date: 20080530
  Transmission Date: 20081010
  Serious: Yes (Hospitalization)
  Sender: FDA-Public Use
  Company Number: None

PATIENT
  Age: 51 Year
  Sex: Male
  Weight: 70 kg

DRUGS (2)
  1. RIBAVIRIN [Suspect]
     Indication: HEPATITIS C
     Dosage: 600 MG BID PO
     Route: 048
     Dates: start: 20080420, end: 20080507
  2. LAMIVUDINE AND ZIDOVUDINE [Suspect]
     Indication: HIV INFECTION
     Dosage: 300 MG BID PO
     Route: 048
     Dates: start: 19990409, end: 20080507

REACTIONS (7)
  - ANAEMIA [None]
  - GASTRIC HAEMORRHAGE [None]
  - HAEMOLYTIC ANAEMIA [None]
  - HEADACHE [None]
  - HEMICEPHALALGIA [None]
  - INFLUENZA LIKE ILLNESS [None]
  - VISION BLURRED [None]
